FAERS Safety Report 16897711 (Version 1)
Quarter: 2019Q4

REPORT INFORMATION
  Report Type: Spontaneous
  Country: CA (occurrence: CA)
  Receive Date: 20191009
  Receipt Date: 20191009
  Transmission Date: 20200122
  Serious: Yes (Hospitalization)
  Sender: FDA-Public Use
  Company Number: CA-TEVA-2019-CA-1118498

PATIENT
  Age: 52 Year
  Sex: Female

DRUGS (5)
  1. BUDESONIDE. [Suspect]
     Active Substance: BUDESONIDE
     Indication: PRODUCT USED FOR UNKNOWN INDICATION
     Route: 065
  2. CRINONE [Suspect]
     Active Substance: PROGESTERONE
     Indication: MENOPAUSE
     Route: 065
  3. ESTRADIOL. [Suspect]
     Active Substance: ESTRADIOL
     Indication: PRODUCT USED FOR UNKNOWN INDICATION
     Route: 065
  4. DEHYDROEPIANDROSTERONE [Suspect]
     Active Substance: PRASTERONE
     Indication: PRODUCT USED FOR UNKNOWN INDICATION
     Route: 067
  5. LORATADINE. [Suspect]
     Active Substance: LORATADINE
     Indication: PRODUCT USED FOR UNKNOWN INDICATION
     Route: 048

REACTIONS (9)
  - Headache [Unknown]
  - Periorbital oedema [Unknown]
  - Rash [Unknown]
  - Butterfly rash [Unknown]
  - Swelling face [Unknown]
  - Cellulitis [Unknown]
  - Feeling hot [Unknown]
  - Photosensitivity reaction [Unknown]
  - Tinnitus [Unknown]
